FAERS Safety Report 8499476-2 (Version None)
Quarter: 2012Q2

REPORT INFORMATION
  Report Type: 
  Country: None (occurrence: None)
  Receive Date: 20120628
  Receipt Date: 20120618
  Transmission Date: 20120825
  Serious: Yes (Hospitalization)
  Sender: FDA-Public Use
  Company Number: UTC-020098

PATIENT
  Age: 80 Year
  Sex: Female

DRUGS (3)
  1. TYVASO [Suspect]
     Indication: COR PULMONALE CHRONIC
     Dosage: 120 MCG (30 MCG, 4 IN 1 D), INHALATION 72 MCG (18 MCG, 4 IN 1 D), INHALATION
     Route: 055
     Dates: start: 20120602
  2. ADCIRCA [Concomitant]
  3. LETAIRIS [Concomitant]

REACTIONS (2)
  - DYSPNOEA [None]
  - ASTHENIA [None]
